FAERS Safety Report 9258107 (Version 2)
Quarter: 2014Q1

REPORT INFORMATION
  Report Type: Spontaneous
  Country: US (occurrence: None)
  Receive Date: 20121212
  Receipt Date: 20130314
  Transmission Date: 20141002
  Serious: No
  Sender: FDA-Public Use
  Company Number: 1209USA004432

PATIENT
  Age: 45 Year
  Sex: Male

DRUGS (3)
  1. PEGINTRON (PEGINTERFERON ALFA-2B) POWDER FOR INJECTION [Suspect]
     Indication: HEPATITIS C
     Dates: start: 20120620
  2. REBETOL (RIBAVIRIN) [Suspect]
     Indication: HEPATITIS C
     Dates: start: 20120620
  3. VICTRELIS [Suspect]
     Indication: HEPATITIS C
     Dates: start: 20120718

REACTIONS (13)
  - Nasal obstruction [None]
  - Rhinorrhoea [None]
  - Insomnia [None]
  - Dysgeusia [None]
  - Dehydration [None]
  - Fatigue [None]
  - Influenza like illness [None]
  - Rhinitis [None]
  - Dysgeusia [None]
  - Nasopharyngitis [None]
  - Oropharyngeal pain [None]
  - Dry mouth [None]
  - Oral pain [None]
